FAERS Safety Report 9332611 (Version 1)
Quarter: 2013Q2

REPORT INFORMATION
  Report Type: Spontaneous
  Country: BR (occurrence: None)
  Receive Date: 20130603
  Receipt Date: 20130603
  Transmission Date: 20140414
  Serious: Yes (Other)
  Sender: FDA-Public Use
  Company Number: DSU-2013-03453

PATIENT
  Age: 20 Year
  Sex: Female

DRUGS (2)
  1. OLMETEC (OLMESARTAN MEDOXOMIL) (40 MILLIGRAM, TABLET) (OLMESARTAN MEDOXOMIL) [Suspect]
     Indication: HYPERTENSION
     Dosage: (20 MG, HALF TABLET OF 40MG)?
     Dates: start: 2012, end: 201303
  2. COMTAN (ENTACAPONE)(1 DOSAGE FORMS, TABLET) (ENTACAPONE) [Concomitant]

REACTIONS (5)
  - Feeling abnormal [None]
  - Blood pressure increased [None]
  - Drug ineffective [None]
  - Syncope [None]
  - Wrong technique in drug usage process [None]
